FAERS Safety Report 10192807 (Version 1)
Quarter: 2014Q2

REPORT INFORMATION
  Report Type: Spontaneous
  Country: US (occurrence: US)
  Receive Date: 20140523
  Receipt Date: 20140523
  Transmission Date: 20141212
  Serious: No
  Sender: FDA-Public Use
  Company Number: US-ASTRAZENECA-2014SE12298

PATIENT
  Age: 57 Year
  Sex: Female

DRUGS (4)
  1. PULMICORT FLEXHALER [Suspect]
     Indication: ASTHMA
     Dosage: 180 MCG, 1 PUFF TWO TIMES A DAY
     Route: 055
  2. PULMICORT FLEXHALER [Suspect]
     Indication: ASTHMA
     Dosage: 180 MCG, 2 PUFF TWO TIMES A DAY
     Route: 055
  3. BUSPAR [Concomitant]
     Indication: RELAXATION THERAPY
  4. CLARATIN [Concomitant]
     Indication: MULTIPLE ALLERGIES

REACTIONS (3)
  - Dyspnoea [Not Recovered/Not Resolved]
  - Pulmonary congestion [Unknown]
  - Drug dose omission [Not Recovered/Not Resolved]
